FAERS Safety Report 9995596 (Version 1)
Quarter: 2014Q1

REPORT INFORMATION
  Report Type: Spontaneous
  Country: US (occurrence: None)
  Receive Date: 20140307
  Receipt Date: 20140307
  Transmission Date: 20141002
  Serious: Yes (Life-Threatening, Hospitalization, Other)
  Sender: FDA-Public Use
  Company Number: None

PATIENT
  Age: 62 Year
  Sex: Female
  Weight: 92.99 kg

DRUGS (12)
  1. DIOVAN [Suspect]
     Indication: HYPERTENSION
     Route: 048
     Dates: start: 20120710, end: 20121107
  2. ALBUTEROL (BULK) [Concomitant]
  3. ALBUTEROL SULFATE [Concomitant]
  4. AMLODIPINE [Concomitant]
  5. ATROVENT [Concomitant]
  6. EPIPEN [Concomitant]
  7. EXENATIDE [Concomitant]
  8. FLUTICASONE [Concomitant]
  9. GLIPIZIDE [Concomitant]
  10. INSULIN GLARGINE [Concomitant]
  11. TYLENOL [Concomitant]
  12. COUGH MEDS [Concomitant]

REACTIONS (2)
  - Lip swelling [None]
  - Cardio-respiratory arrest [None]
